FAERS Safety Report 5485897-9 (Version None)
Quarter: 2007Q4

REPORT INFORMATION
  Report Type: 
  Country: None (occurrence: None)
  Receive Date: 20071015
  Receipt Date: 20071009
  Transmission Date: 20080405
  Serious: Yes (Death)
  Sender: FDA-Public Use
  Company Number: CA-BOEHRINGER INGELHEIM PHARMACEUTICALS, INC.-2007-CN-00723CN

PATIENT
  Sex: Female

DRUGS (3)
  1. VIRAMUNE [Suspect]
  2. TRUVADA [Concomitant]
  3. COMBIVIR [Concomitant]

REACTIONS (2)
  - LIPOATROPHY [None]
  - LYMPHOMA [None]
